FAERS Safety Report 4307899-8 (Version None)
Quarter: 2004Q1

REPORT INFORMATION
  Report Type: 
  Country: None (occurrence: None)
  Receive Date: 20040226
  Receipt Date: 20030219
  Transmission Date: 20041129
  Serious: Yes (Hospitalization)
  Sender: FDA-Public Use
  Company Number: 2003147788US

PATIENT
  Age: 40 Year
  Sex: Female

DRUGS (8)
  1. CELEBREX [Suspect]
     Indication: ARTHRITIS
     Dosage: 200 MG BID ORAL
     Route: 048
     Dates: start: 19990101, end: 20011203
  2. AMITRIPTYLINE HCL [Concomitant]
  3. PRANDIN (NOVO NURDISE) (REPAGLINIDE) [Concomitant]
  4. PENICILLIN G BENZATHINE [Concomitant]
  5. ACCUPRIL [Concomitant]
  6. PAXIL [Concomitant]
  7. DARVOCET-N 100 [Concomitant]
  8. OXYCONTIN [Concomitant]

REACTIONS (4)
  - ABDOMINAL PAIN [None]
  - GASTROINTESTINAL HAEMORRHAGE [None]
  - HAEMATEMESIS [None]
  - NAUSEA [None]
